FAERS Safety Report 7585193-X (Version None)
Quarter: 2011Q3

REPORT INFORMATION
  Report Type: 
  Country: None (occurrence: None)
  Receive Date: 20110701
  Receipt Date: 20090811
  Transmission Date: 20111222
  Serious: No
  Sender: FDA-Public Use
  Company Number: 2009BI025446

PATIENT
  Sex: Female

DRUGS (1)
  1. TYSABRI [Suspect]
     Indication: MULTIPLE SCLEROSIS
     Route: 042
     Dates: start: 20070215

REACTIONS (18)
  - POOR QUALITY SLEEP [None]
  - BACK PAIN [None]
  - HEADACHE [None]
  - FATIGUE [None]
  - MUSCULOSKELETAL PAIN [None]
  - ABDOMINAL PAIN UPPER [None]
  - ANKLE FRACTURE [None]
  - CRYING [None]
  - PAIN IN EXTREMITY [None]
  - HAEMORRHAGE [None]
  - VITAMIN D DEFICIENCY [None]
  - HYPOAESTHESIA [None]
  - VITAMIN D DECREASED [None]
  - DEPRESSION [None]
  - FALL [None]
  - GAIT DISTURBANCE [None]
  - WEIGHT INCREASED [None]
  - MOBILITY DECREASED [None]
